FAERS Safety Report 18618200 (Version 1)
Quarter: 2020Q4

REPORT INFORMATION
  Report Type: Spontaneous
  Country: US (occurrence: US)
  Receive Date: 20201215
  Receipt Date: 20201215
  Transmission Date: 20210114
  Serious: Yes (Other)
  Sender: FDA-Public Use
  Company Number: None

PATIENT

DRUGS (1)
  1. DEXTROAMPHETAMINE-AMPHETAMINE SALTS [Suspect]
     Active Substance: AMPHETAMINE\DEXTROAMPHETAMINE
     Indication: ATTENTION DEFICIT HYPERACTIVITY DISORDER
     Route: 048
     Dates: start: 20201211, end: 20201214

REACTIONS (9)
  - Product substitution issue [None]
  - Anxiety [None]
  - Insomnia [None]
  - Tic [None]
  - Decreased appetite [None]
  - Abdominal discomfort [None]
  - Muscle twitching [None]
  - Tachyphrenia [None]
  - Drug ineffective [None]

NARRATIVE: CASE EVENT DATE: 20201114
